FAERS Safety Report 4559389-5 (Version None)
Quarter: 2005Q1

REPORT INFORMATION
  Report Type: 
  Country: None (occurrence: None)
  Receive Date: 20050119
  Receipt Date: 20050117
  Transmission Date: 20050727
  Serious: Yes (Hospitalization)
  Sender: FDA-Public Use
  Company Number: TCI2000A01688

PATIENT
  Age: 59 Year
  Sex: Male

DRUGS (4)
  1. ACTOS [Suspect]
     Indication: DIABETES MELLITUS NON-INSULIN-DEPENDENT
     Dosage: 30 MG (30 MG 1 IN 1 D); PER ORAL
     Route: 048
     Dates: start: 20000212, end: 20000816
  2. GLIBENCLAMIDE [Concomitant]
  3. SIMVASTATIN [Concomitant]
  4. ACARBOSE [Concomitant]

REACTIONS (1)
  - RENAL FAILURE [None]
